FAERS Safety Report 12960778 (Version 2)
Quarter: 2016Q4

REPORT INFORMATION
  Report Type: Spontaneous
  Country: US (occurrence: US)
  Receive Date: 20161121
  Receipt Date: 20161125
  Transmission Date: 20170207
  Serious: Yes (Other)
  Sender: FDA-Public Use
  Company Number: US-009507513-1611USA007465

PATIENT
  Age: 52 Year
  Sex: Female
  Weight: 73.02 kg

DRUGS (5)
  1. TRAZODONE HYDROCHLORIDE. [Suspect]
     Active Substance: TRAZODONE HYDROCHLORIDE
     Indication: SLEEP DISORDER
     Dosage: 300 MG, HS
     Route: 048
  2. LYRICA [Suspect]
     Active Substance: PREGABALIN
     Indication: FIBROMYALGIA
     Dosage: UNK
     Route: 048
  3. METAMUCIL [Suspect]
     Active Substance: PLANTAGO SEED
  4. NASONEX [Suspect]
     Active Substance: MOMETASONE FUROATE
     Indication: NASAL POLYPS
     Dosage: 50MCG/AC TWO SPRAYS INTO EACH NOSTRIL DAILY
     Route: 045
     Dates: start: 2005
  5. LYRICA [Suspect]
     Active Substance: PREGABALIN
     Dosage: 100 MG, TID
     Route: 048
     Dates: start: 201610

REACTIONS (16)
  - Gastric ulcer [Recovered/Resolved]
  - Hypertension [Unknown]
  - Nasal polyps [Not Recovered/Not Resolved]
  - Blood cholesterol increased [Not Recovered/Not Resolved]
  - Constipation [Unknown]
  - Pain [Unknown]
  - Mobility decreased [Not Recovered/Not Resolved]
  - Breakthrough pain [Not Recovered/Not Resolved]
  - Helicobacter infection [Recovered/Resolved]
  - Drug ineffective [Unknown]
  - Fibromyalgia [Not Recovered/Not Resolved]
  - Depression [Not Recovered/Not Resolved]
  - Myalgia [Unknown]
  - Vomiting [Unknown]
  - Drug dose omission [Unknown]
  - Gastritis [Not Recovered/Not Resolved]

NARRATIVE: CASE EVENT DATE: 2001
